FAERS Safety Report 9444182 (Version 1)
Quarter: 2013Q3

REPORT INFORMATION
  Report Type: Spontaneous
  Country: US (occurrence: None)
  Receive Date: 20130806
  Receipt Date: 20130806
  Transmission Date: 20140515
  Serious: No
  Sender: FDA-Public Use
  Company Number: None

PATIENT
  Age: 55 None
  Sex: Female

DRUGS (9)
  1. ZIPRASIDONE [Suspect]
     Indication: BIPOLAR DISORDER
     Route: 048
     Dates: start: 20130605, end: 20130614
  2. TRAZODONE [Concomitant]
  3. ZIPRASIDONE [Concomitant]
  4. FENOFIBRATE [Concomitant]
  5. DOCUSATE [Concomitant]
  6. SPIRONOLACTONE [Concomitant]
  7. PRAVASTATIN [Concomitant]
  8. ATENOL [Concomitant]
  9. ASPIRIN [Concomitant]

REACTIONS (4)
  - Gastrointestinal motility disorder [None]
  - Dysuria [None]
  - Sexual dysfunction [None]
  - Product quality issue [None]
